FAERS Safety Report 4582539-1 (Version None)
Quarter: 2005Q1

REPORT INFORMATION
  Report Type: 
  Country: None (occurrence: None)
  Receive Date: 20050211
  Receipt Date: 20050211
  Transmission Date: 20050727
  Serious: Yes (Other)
  Sender: FDA-Public Use
  Company Number: None

PATIENT
  Age: 36 Year
  Sex: Female
  Weight: 74.8435 kg

DRUGS (2)
  1. RANITIDINE [Suspect]
     Indication: INFLAMMATION
     Dosage: 2 DAILY
  2. PRILOSEC [Suspect]
     Dosage: 1 DAILY

REACTIONS (5)
  - CHOKING [None]
  - DYSPHAGIA [None]
  - GASTROOESOPHAGEAL REFLUX DISEASE [None]
  - THERAPY NON-RESPONDER [None]
  - VOMITING [None]
